FAERS Safety Report 18333276 (Version 1)
Quarter: 2020Q4

REPORT INFORMATION
  Report Type: Spontaneous
  Country: CN (occurrence: CN)
  Receive Date: 20201001
  Receipt Date: 20201001
  Transmission Date: 20210113
  Serious: Yes (Other)
  Sender: FDA-Public Use
  Company Number: CN-ROCHE-2687657

PATIENT
  Age: 45 Year
  Sex: Female
  Weight: 55 kg

DRUGS (2)
  1. SODIUM CHLORIDE 0.9% [Concomitant]
     Active Substance: SODIUM CHLORIDE
     Route: 041
     Dates: start: 20200920, end: 20200920
  2. HERCEPTIN [Suspect]
     Active Substance: TRASTUZUMAB
     Indication: BREAST CANCER
     Route: 041
     Dates: start: 20200920, end: 20200920

REACTIONS (1)
  - Seizure [Recovered/Resolved]

NARRATIVE: CASE EVENT DATE: 20200920
